FAERS Safety Report 24722393 (Version 2)
Quarter: 2024Q4

REPORT INFORMATION
  Report Type: Report from Study
  Country: US (occurrence: US)
  Receive Date: 20241211
  Receipt Date: 20241220
  Transmission Date: 20250115
  Serious: Yes (Hospitalization, Other)
  Sender: ABBVIE
  Company Number: US-ABBVIE-6040209

PATIENT
  Age: 65 Year
  Sex: Female

DRUGS (3)
  1. SKYRIZI [Suspect]
     Active Substance: RISANKIZUMAB-RZAA
     Indication: Psoriatic arthropathy
     Dosage: STRENGTH: 150MG/ML, WEEK 0 DOSE
     Route: 058
     Dates: start: 20240718, end: 20240718
  2. SKYRIZI [Suspect]
     Active Substance: RISANKIZUMAB-RZAA
     Indication: Psoriasis
     Dosage: STRENGTH: 150MG/ML, WEEK 4 DOSE
     Route: 058
     Dates: start: 20240815, end: 20240815
  3. SKYRIZI [Suspect]
     Active Substance: RISANKIZUMAB-RZAA
     Dosage: STRENGTH: 150MG/ML
     Route: 058
     Dates: start: 202411

REACTIONS (7)
  - Mammoplasty [Unknown]
  - Skin discolouration [Unknown]
  - Night sweats [Not Recovered/Not Resolved]
  - Bone pain [Unknown]
  - Psoriasis [Unknown]
  - Rash [Unknown]
  - Drug ineffective [Not Recovered/Not Resolved]

NARRATIVE: CASE EVENT DATE: 20240101
